FAERS Safety Report 14552152 (Version 1)
Quarter: 2018Q1

REPORT INFORMATION
  Report Type: Report from Study
  Country: US (occurrence: US)
  Receive Date: 20180220
  Receipt Date: 20180220
  Transmission Date: 20180509
  Serious: Yes (Other)
  Sender: FDA-Public Use
  Company Number: US-ALEXION PHARMACEUTICALS INC-A201801568

PATIENT
  Age: 30 Year
  Sex: Male
  Weight: 94 kg

DRUGS (6)
  1. WARFARIN [Concomitant]
     Active Substance: WARFARIN
     Indication: CEREBRAL THROMBOSIS
     Dosage: 5 MG + 1.25 MG, DAILY
     Route: 048
     Dates: start: 201405
  2. SOLIRIS [Suspect]
     Active Substance: ECULIZUMAB
     Dosage: 900 MG, UNK
     Route: 042
     Dates: start: 20171024
  3. SOLIRIS [Suspect]
     Active Substance: ECULIZUMAB
     Indication: PRODUCT USED FOR UNKNOWN INDICATION
     Dosage: 600 MG, UNK
     Route: 042
     Dates: start: 20150204
  4. WARFARIN [Concomitant]
     Active Substance: WARFARIN
     Indication: MESENTERIC VEIN THROMBOSIS
  5. WARFARIN [Concomitant]
     Active Substance: WARFARIN
     Indication: SPLENIC VEIN THROMBOSIS
  6. SOLIRIS [Suspect]
     Active Substance: ECULIZUMAB
     Dosage: 600 MG, UNK
     Route: 042
     Dates: end: 20171107

REACTIONS (3)
  - Incorrect dose administered [Unknown]
  - Blood lactate dehydrogenase increased [Unknown]
  - Haptoglobin decreased [Unknown]

NARRATIVE: CASE EVENT DATE: 20171107
